FAERS Safety Report 21598690 (Version 2)
Quarter: 2022Q4

REPORT INFORMATION
  Report Type: Spontaneous
  Country: US (occurrence: US)
  Receive Date: 20221115
  Receipt Date: 20221118
  Transmission Date: 20230112
  Serious: No
  Sender: FDA-Public Use
  Company Number: US-SA-SAC20221111000248

PATIENT
  Sex: Female
  Weight: 43.09 kg

DRUGS (4)
  1. DUPIXENT [Suspect]
     Active Substance: DUPILUMAB
     Indication: Dermatitis allergic
     Dosage: 300 MG, QOW
     Route: 058
  2. DUPIXENT [Suspect]
     Active Substance: DUPILUMAB
     Indication: Dermatitis atopic
  3. ZYRTEC [Concomitant]
     Active Substance: CETIRIZINE HYDROCHLORIDE
     Indication: Hypersensitivity
     Dosage: UNK
  4. LOESTRIN 1.5/30-21 [Concomitant]
     Dosage: UNK

REACTIONS (5)
  - Skin swelling [Unknown]
  - Erythema [Unknown]
  - Erythema of eyelid [Unknown]
  - Eyelid exfoliation [Unknown]
  - Rash [Not Recovered/Not Resolved]
